FAERS Safety Report 5816710-5 (Version None)
Quarter: 2008Q3

REPORT INFORMATION
  Report Type: 
  Country: None (occurrence: None)
  Receive Date: 20080721
  Receipt Date: 20080709
  Transmission Date: 20090109
  Serious: Yes (Hospitalization, Other)
  Sender: FDA-Public Use
  Company Number: FR-PFIZER INC-2008057439

PATIENT
  Age: 27 Year
  Sex: Female

DRUGS (4)
  1. CHANTIX [Suspect]
     Indication: SMOKING CESSATION THERAPY
     Dates: start: 20070801, end: 20071101
  2. PRAZEPAM [Suspect]
  3. ESCITALOPRAM [Suspect]
  4. TRIPHASIL-21 [Concomitant]

REACTIONS (6)
  - CHILD ABUSE [None]
  - DELIRIUM [None]
  - DEPRESSION [None]
  - DISSOCIATION [None]
  - HALLUCINATION [None]
  - SCHIZOPHRENIA [None]
